FAERS Safety Report 14677405 (Version 3)
Quarter: 2018Q4

REPORT INFORMATION
  Report Type: Spontaneous
  Country: IT (occurrence: IT)
  Receive Date: 20180325
  Receipt Date: 20181217
  Transmission Date: 20190204
  Serious: Yes (Hospitalization, Other)
  Sender: FDA-Public Use
  Company Number: IT-MYLANLABS-2018M1012255

PATIENT
  Age: 54 Year
  Sex: Female

DRUGS (9)
  1. HYDROCORTISONE. [Concomitant]
     Active Substance: HYDROCORTISONE
     Indication: PREMEDICATION
     Dosage: 200 MG, UNK
     Route: 042
  2. RITUXIMAB. [Suspect]
     Active Substance: RITUXIMAB
     Indication: GASTROINTESTINAL LYMPHOMA
     Dosage: 375 MG/M2, UNK (ON DAY 1 FOR UP TO SIX CYCLES EVERY 28 DAYS)
     Route: 042
  3. FLUDARABINE [Suspect]
     Active Substance: FLUDARABINE PHOSPHATE
     Indication: GASTROINTESTINAL LYMPHOMA
     Dosage: 25 MG/M2, UNK (ON DAYS 2 TO 4 FOR UP TO SIX CYCLES EVERY 28 DAYS)
     Route: 042
  4. MITOXANTRONE [Suspect]
     Active Substance: MITOXANTRONE HYDROCHLORIDE
     Indication: GASTROINTESTINAL LYMPHOMA
     Dosage: 10 MG/M2, UNK (ON DAY 2 FOR UP TO SIX CYCLES EVERY 28 DAYS)
     Route: 042
  5. PARACETAMOL [Concomitant]
     Active Substance: ACETAMINOPHEN
     Indication: PREMEDICATION
     Dosage: UNK
  6. CHLORPHENAMINE [Concomitant]
     Active Substance: CHLORPHENIRAMINE MALEATE
     Indication: PREMEDICATION
     Dosage: 10 MG, UNK
     Route: 042
  7. SULFAMETHOXAZOLE W/TRIMETHOPRIM [Concomitant]
     Active Substance: SULFAMETHOXAZOLE\TRIMETHOPRIM
     Indication: INFECTION PROPHYLAXIS
     Dosage: 2, 1 DAY (160/800 MG TWICE A DAY TWO TIMES A WEEK,)
     Route: 065
  8. MABTHERA [Suspect]
     Active Substance: RITUXIMAB
     Indication: GASTROINTESTINAL LYMPHOMA
     Dosage: 375 MG/M2, DAY 1 OF EACH CYCLE
     Route: 042
  9. FILGRASTIM [Suspect]
     Active Substance: FILGRASTIM
     Indication: PROPHYLAXIS
     Dosage: UNK
     Route: 065

REACTIONS (5)
  - Febrile neutropenia [Unknown]
  - Pancytopenia [Unknown]
  - Candida infection [Unknown]
  - Cytomegalovirus infection [Unknown]
  - Pyrexia [Unknown]
